FAERS Safety Report 21323720 (Version 1)
Quarter: 2022Q3

REPORT INFORMATION
  Report Type: Spontaneous
  Country: None (occurrence: US)
  Receive Date: 20220912
  Receipt Date: 20220912
  Transmission Date: 20221027
  Serious: No
  Sender: FDA-Public Use
  Company Number: US-ITALFARMACO SPA-2132751

PATIENT
  Age: 68 Year
  Sex: Female

DRUGS (15)
  1. TIGLUTIK [Suspect]
     Active Substance: RILUZOLE
     Indication: Amyotrophic lateral sclerosis
     Dates: start: 20220617
  2. VITAMIN B3 [Concomitant]
     Active Substance: NIACIN
  3. VITAMIN B1 [Concomitant]
     Active Substance: THIAMINE HYDROCHLORIDE
  4. OMEPRAZOLE [Concomitant]
     Active Substance: OMEPRAZOLE
  5. MYRBETRIQ [Concomitant]
     Active Substance: MIRABEGRON
  6. VITAMINS [Concomitant]
     Active Substance: VITAMINS
  7. LEVOTHYROXINE [Concomitant]
     Active Substance: LEVOTHYROXINE
  8. LEVOCETIRIZINE DIHYDROCHLORIDE [Concomitant]
     Active Substance: LEVOCETIRIZINE DIHYDROCHLORIDE
  9. FUROSEMIDE [Concomitant]
     Active Substance: FUROSEMIDE
  10. FOLIC ACID [Concomitant]
     Active Substance: FOLIC ACID
  11. ESCITALOPRAM [Concomitant]
     Active Substance: ESCITALOPRAM OXALATE
  12. ELIQUIS [Concomitant]
     Active Substance: APIXABAN
  13. CYCLOBENZAPRINE [Concomitant]
     Active Substance: CYCLOBENZAPRINE
  14. CLOBETASOL PROPIONATE [Concomitant]
     Active Substance: CLOBETASOL PROPIONATE
  15. ATORVASTATIN CALCIUM [Concomitant]
     Active Substance: ATORVASTATIN CALCIUM

REACTIONS (1)
  - Hepatic enzyme increased [Not Recovered/Not Resolved]
